FAERS Safety Report 4983625-4 (Version None)
Quarter: 2006Q2

REPORT INFORMATION
  Report Type: 
  Country: None (occurrence: None)
  Receive Date: 20060425
  Receipt Date: 20060425
  Transmission Date: 20061013
  Serious: Yes (Hospitalization)
  Sender: FDA-Public Use
  Company Number: None

PATIENT
  Sex: Male
  Weight: 52.6173 kg

DRUGS (5)
  1. CLOPIDOGREL [Suspect]
     Indication: CEREBROVASCULAR ACCIDENT
     Dosage: 75 MG DAILY
     Dates: start: 20050309, end: 20060209
  2. ... [Concomitant]
  3. .... [Concomitant]
  4. ... [Concomitant]
  5. ... [Concomitant]

REACTIONS (1)
  - LOWER GASTROINTESTINAL HAEMORRHAGE [None]
